FAERS Safety Report 9681434 (Version 1)
Quarter: 2013Q4

REPORT INFORMATION
  Report Type: Spontaneous
  Country: US (occurrence: US)
  Receive Date: 20131111
  Receipt Date: 20131111
  Transmission Date: 20140711
  Serious: No
  Sender: FDA-Public Use
  Company Number: US-BAYER-2013-136820

PATIENT
  Age: 71 Year
  Sex: Male
  Weight: 72.56 kg

DRUGS (2)
  1. ALEVE TABLET [Suspect]
     Indication: TOOTHACHE
     Dosage: 2 DF, PRN
     Route: 048
  2. ALEVE TABLET [Suspect]
     Indication: BACK PAIN

REACTIONS (1)
  - Drug ineffective [None]
